FAERS Safety Report 20602251 (Version 1)
Quarter: 2022Q1

REPORT INFORMATION
  Report Type: Spontaneous
  Country: US (occurrence: None)
  Receive Date: 20220315
  Receipt Date: 20220315
  Transmission Date: 20220423
  Serious: Yes (Other)
  Sender: FDA-Public Use
  Company Number: None

PATIENT
  Age: 34 Year
  Sex: Female
  Weight: 70.65 kg

DRUGS (1)
  1. LUPRON DEPOT [Suspect]
     Active Substance: LEUPROLIDE ACETATE
     Indication: Endometriosis
     Dosage: OTHER QUANTITY : 1 INJECTION(S);?OTHER FREQUENCY : ONCE-  3 MTHS;?
     Route: 058
     Dates: start: 20211215, end: 20211215

REACTIONS (9)
  - Anxiety [None]
  - Obsessive-compulsive disorder [None]
  - Feeling abnormal [None]
  - Hot flush [None]
  - Mood swings [None]
  - Tachyphrenia [None]
  - Insomnia [None]
  - Impaired driving ability [None]
  - Memory impairment [None]

NARRATIVE: CASE EVENT DATE: 20220120
